FAERS Safety Report 20143041 (Version 1)
Quarter: 2021Q4

REPORT INFORMATION
  Report Type: Spontaneous
  Country: CN (occurrence: CN)
  Receive Date: 20211202
  Receipt Date: 20211202
  Transmission Date: 20220303
  Serious: Yes (Other)
  Sender: FDA-Public Use
  Company Number: CN-ABBVIE-21K-035-4182299-00

PATIENT
  Age: 71 Year
  Sex: Male
  Weight: 67 kg

DRUGS (7)
  1. VALPROATE SODIUM [Suspect]
     Active Substance: VALPROATE SODIUM
     Indication: Prophylaxis
     Route: 048
     Dates: start: 20211028, end: 20211115
  2. SODIUM CHLORIDE [Concomitant]
     Active Substance: SODIUM CHLORIDE
     Indication: Product used for unknown indication
     Dates: start: 20211026, end: 20211026
  3. CEFTAZIDIME [Concomitant]
     Active Substance: CEFTAZIDIME
     Indication: Product used for unknown indication
     Dates: start: 20211027, end: 20211030
  4. CEFOPERAZONE SODIUM\SULBACTAM SODIUM [Concomitant]
     Active Substance: CEFOPERAZONE SODIUM\SULBACTAM SODIUM
     Indication: Product used for unknown indication
  5. CEFTRIAXONE SODIUM [Concomitant]
     Active Substance: CEFTRIAXONE SODIUM
     Indication: Product used for unknown indication
  6. ETIMICIN SULFATE;SODIUM CHLORIDE [Concomitant]
     Indication: Product used for unknown indication
  7. MANNITOL [Concomitant]
     Active Substance: MANNITOL
     Indication: Product used for unknown indication

REACTIONS (4)
  - Hepatic enzyme increased [Unknown]
  - Vomiting [Unknown]
  - Pneumonitis [Unknown]
  - Confusional state [Unknown]

NARRATIVE: CASE EVENT DATE: 20211104
